FAERS Safety Report 18275046 (Version 1)
Quarter: 2020Q3

REPORT INFORMATION
  Report Type: Spontaneous
  Country: US (occurrence: US)
  Receive Date: 20200917
  Receipt Date: 20200917
  Transmission Date: 20201103
  Serious: No
  Sender: FDA-Public Use
  Company Number: US-RECORDATI RARE DISEASES-2090827

PATIENT
  Age: 63 Year
  Sex: Female

DRUGS (2)
  1. ISTURISA [Suspect]
     Active Substance: OSILODROSTAT PHOSPHATE
     Dates: start: 20200831, end: 20200901
  2. ISTURISA [Suspect]
     Active Substance: OSILODROSTAT PHOSPHATE
     Indication: CUSHING^S SYNDROME
     Dates: start: 20200828, end: 20200830

REACTIONS (12)
  - Dysphagia [Recovered/Resolved]
  - Limb discomfort [Recovered/Resolved]
  - Oropharyngeal discomfort [Recovering/Resolving]
  - Urticaria [Recovered/Resolved]
  - Oedema peripheral [Recovered/Resolved]
  - Drug hypersensitivity [Unknown]
  - Illness [Recovered/Resolved]
  - Eye swelling [Recovered/Resolved]
  - Visual impairment [Recovered/Resolved]
  - Rash [Recovered/Resolved]
  - Oropharyngeal pain [Recovered/Resolved]
  - Cough [Recovered/Resolved]

NARRATIVE: CASE EVENT DATE: 2020
